FAERS Safety Report 18668284 (Version 1)
Quarter: 2020Q4

REPORT INFORMATION
  Report Type: Spontaneous
  Country: US (occurrence: US)
  Receive Date: 20201224
  Receipt Date: 20201224
  Transmission Date: 20210114
  Serious: No
  Sender: FDA-Public Use
  Company Number: None

PATIENT
  Age: 63 Year
  Sex: Female
  Weight: 68.95 kg

DRUGS (2)
  1. LAMOTRIGINE EXTENDED RELEASE [Suspect]
     Active Substance: LAMOTRIGINE
     Route: 048
     Dates: start: 20201223, end: 20201224
  2. LAMOTRIGINE EXTENDED RELEASE [Suspect]
     Active Substance: LAMOTRIGINE
     Route: 048
     Dates: start: 20201223, end: 20201224

REACTIONS (4)
  - Product quality issue [None]
  - Somnolence [None]
  - Manufacturing issue [None]
  - Anxiety [None]

NARRATIVE: CASE EVENT DATE: 20201223
